FAERS Safety Report 19769306 (Version 1)
Quarter: 2021Q3

REPORT INFORMATION
  Report Type: Spontaneous
  Country: NL (occurrence: NL)
  Receive Date: 20210831
  Receipt Date: 20210831
  Transmission Date: 20211014
  Serious: Yes (Other)
  Sender: FDA-Public Use
  Company Number: NL-TEVA-2021-NL-1946297

PATIENT
  Age: 72 Year
  Sex: Male

DRUGS (4)
  1. COLECALCIFEROL / BRAND NAME NOT SPECIFIED [Concomitant]
     Active Substance: CHOLECALCIFEROL
     Dosage: WOMAN 1X A WEEK AND MAN EVERY DAY 1:UNIT DOSE:1DOSAGEFORMTHERAPY START DATE:THERAPY END DATE:ASKU
  2. Q10 [Concomitant]
     Active Substance: DIETARY SUPPLEMENT\UBIDECARENONE
     Dosage: WOMAN 1X A WEEK AND MAN EVERY DAY 1:THERAPY START DATE:THERAPY END DATE :ASKU:UNIT DOSE:1DOSAGE FORM
  3. ATORVASTATINE TABLET 20MG / BRAND NAME NOT SPECIFIED [Concomitant]
     Active Substance: ATORVASTATIN
     Dosage: WOMAN 1X A WEEK AND MAN EVERY DAY 1UNIT DOSE:1DOSAGEFORMTHERAPY START DATE :THERAPY END DATE :ASKU
  4. IRBESARTAN TABLET 300MG / IRBESARTAN TEVA TABLET FILMOMHULD 300MG [Suspect]
     Active Substance: IRBESARTAN
     Indication: HYPERTENSION
     Dosage: THERAPY END DATE :ASKU
     Dates: start: 2017

REACTIONS (1)
  - Neoplasm malignant [Unknown]

NARRATIVE: CASE EVENT DATE: 20210225
